FAERS Safety Report 11465593 (Version 1)
Quarter: 2015Q3

REPORT INFORMATION
  Report Type: Spontaneous
  Country: GB (occurrence: GB)
  Receive Date: 20150907
  Receipt Date: 20150907
  Transmission Date: 20151125
  Serious: Yes (Other)
  Sender: FDA-Public Use
  Company Number: GB-PFIZER INC-2015244653

PATIENT
  Age: 84 Year
  Sex: Male

DRUGS (4)
  1. SUTENT [Suspect]
     Active Substance: SUNITINIB MALATE
     Dosage: 37.5 MG, UNK
     Dates: start: 201010, end: 201406
  2. MORPHINE [Concomitant]
     Active Substance: MORPHINE
     Indication: BACK PAIN
     Dosage: UNK
     Dates: start: 201006
  3. PREDNISOLONE. [Concomitant]
     Active Substance: PREDNISOLONE
     Indication: ARTHRALGIA
     Dosage: UNK
     Dates: start: 201102
  4. SUTENT [Suspect]
     Active Substance: SUNITINIB MALATE
     Indication: RENAL CANCER METASTATIC
     Dosage: 50 MG, DAILY, 4 WEEKS ON FOLLOWED BY 2 WEEKS OFF
     Dates: start: 201006, end: 201010

REACTIONS (13)
  - Decreased appetite [Recovered/Resolved]
  - Weight decreased [Recovered/Resolved]
  - Disease progression [Unknown]
  - Renal cancer metastatic [Unknown]
  - Lacrimation increased [Recovered/Resolved]
  - Arthralgia [Recovered/Resolved]
  - Impaired healing [Unknown]
  - Pain in extremity [Recovered/Resolved]
  - Basal cell carcinoma [Unknown]
  - Fatigue [Recovered/Resolved]
  - Pain in jaw [Recovered/Resolved]
  - Second primary malignancy [Unknown]
  - Dysgeusia [Recovered/Resolved]
